FAERS Safety Report 9184482 (Version 1)
Quarter: 2012Q4

REPORT INFORMATION
  Report Type: 
  Country: US (occurrence: US)
  Receive Date: 20121101
  Receipt Date: 20121101
  Transmission Date: 20130627
  Serious: Yes (Hospitalization, Other)
  Sender: FDA-Public Use
  Company Number: US-PFIZER INC-2012271507

PATIENT
  Age: 61 Year
  Sex: Male
  Weight: 88.44 kg

DRUGS (1)
  1. CHANTIX [Suspect]
     Indication: SMOKING CESSATION THERAPY
     Dosage: UNK
     Route: 048
     Dates: start: 20120801, end: 20121002

REACTIONS (1)
  - Carotid artery occlusion [Recovered/Resolved]
